FAERS Safety Report 7236907-X (Version None)
Quarter: 2011Q1

REPORT INFORMATION
  Report Type: 
  Country: None (occurrence: None)
  Receive Date: 20110120
  Receipt Date: 20110110
  Transmission Date: 20110831
  Serious: Yes (Other)
  Sender: FDA-Public Use
  Company Number: US-BRISTOL-MYERS SQUIBB COMPANY-15479058

PATIENT
  Age: 46 Year
  Sex: Female

DRUGS (4)
  1. OLMESARTAN MEDOXOMIL [Concomitant]
     Dates: start: 20100325
  2. HYDROCHLOROTHIAZIDE [Concomitant]
     Dates: start: 20040601
  3. METHOTREXATE [Concomitant]
     Indication: RHEUMATOID ARTHRITIS
     Dates: start: 20080613
  4. ABATACEPT [Suspect]
     Indication: RHEUMATOID ARTHRITIS
     Dosage: INTR ON 10JAN11
     Route: 058
     Dates: start: 20090409

REACTIONS (3)
  - MULTIPLE SCLEROSIS [None]
  - INTERVERTEBRAL DISC DEGENERATION [None]
  - NUCLEAR MAGNETIC RESONANCE IMAGING SPINAL CORD ABNORMAL [None]
